FAERS Safety Report 26005721 (Version 1)
Quarter: 2025Q4

REPORT INFORMATION
  Report Type: Spontaneous
  Country: US (occurrence: US)
  Receive Date: 20251106
  Receipt Date: 20251106
  Transmission Date: 20260117
  Serious: No
  Sender: LEO PHARM
  Company Number: US-LEO Pharma-383983

PATIENT
  Age: 35 Year
  Sex: Male

DRUGS (1)
  1. ADBRY [Suspect]
     Active Substance: TRALOKINUMAB-LDRM
     Indication: Dermatitis atopic
     Dosage: 600 MG FOR THE LOADING DOSE ADMINISTERED ON 22-OCT-2025
     Dates: start: 20251022

REACTIONS (3)
  - Oedema [Unknown]
  - Dermatitis exfoliative generalised [Unknown]
  - Skin exfoliation [Unknown]
